FAERS Safety Report 5368412-X (Version None)
Quarter: 2007Q2

REPORT INFORMATION
  Report Type: 
  Country: None (occurrence: None)
  Receive Date: 20070621
  Receipt Date: 20070608
  Transmission Date: 20071010
  Serious: Yes (Life-Threatening, Hospitalization)
  Sender: FDA-Public Use
  Company Number: GXKR2007JP04672

PATIENT
  Age: 25 Year
  Sex: Male
  Weight: 68.3 kg

DRUGS (8)
  1. METHOTREXATE [Suspect]
     Indication: ACUTE LYMPHOCYTIC LEUKAEMIA
     Dosage: 15 MG, 8 DOSES, INTRATHECAL
     Route: 037
  2. PREDNISOLONE [Suspect]
     Indication: ACUTE LYMPHOCYTIC LEUKAEMIA
     Dosage: SEE IMAGE
     Route: 037
  3. CYTARABINE [Suspect]
     Indication: ACUTE LYMPHOCYTIC LEUKAEMIA
     Dosage: 50 MG, 8 DOSES, INTRATHECAL
     Route: 037
  4. L-ASPARAGINASE(ASPARAGINASE) [Suspect]
     Indication: ACUTE LYMPHOCYTIC LEUKAEMIA
     Dosage: 4000 KU/M2
  5. ADRIAMYCIN PFS [Concomitant]
  6. VINCRISTINE [Concomitant]
  7. CYCLOPHOSPHAMIDE [Concomitant]
  8. MITOXANTRONE [Concomitant]

REACTIONS (7)
  - BLOOD BILIRUBIN INCREASED [None]
  - BRAIN OEDEMA [None]
  - CEREBRAL HAEMORRHAGE [None]
  - CONVULSION [None]
  - HEMIPLEGIA [None]
  - LOSS OF CONSCIOUSNESS [None]
  - SUPERIOR SAGITTAL SINUS THROMBOSIS [None]
